FAERS Safety Report 6864059-4 (Version None)
Quarter: 2010Q3

REPORT INFORMATION
  Report Type: 
  Country: None (occurrence: None)
  Receive Date: 20100720
  Receipt Date: 20100712
  Transmission Date: 20110219
  Serious: Yes (Death)
  Sender: FDA-Public Use
  Company Number: DSA_43327_2010

PATIENT
  Sex: Female
  Weight: 61.6892 kg

DRUGS (12)
  1. XENAZINE [Suspect]
     Indication: TARDIVE DYSKINESIA
     Dosage: 12.5 MG TID ORAL
     Route: 048
     Dates: start: 20100302
  2. AMLODIPINE [Concomitant]
  3. ATORVASTATIN [Concomitant]
  4. COGENTIN [Concomitant]
  5. FLUOXETINE [Concomitant]
  6. NAMENDA [Concomitant]
  7. OMEPRAZOLE [Concomitant]
  8. EXELON [Concomitant]
  9. SERTRALINE HYDROCHLORIDE [Concomitant]
  10. COUMADIN [Concomitant]
  11. MECLIZINE [Concomitant]
  12. FUROSEMIDE [Concomitant]

REACTIONS (1)
  - TREATMENT NONCOMPLIANCE [None]
